FAERS Safety Report 9162615 (Version 1)
Quarter: 2013Q1

REPORT INFORMATION
  Report Type: Spontaneous
  Country: PE (occurrence: None)
  Receive Date: 20130222
  Receipt Date: 20130222
  Transmission Date: 20140127
  Serious: Yes (Other)
  Sender: FDA-Public Use
  Company Number: SYM-2013-00738

PATIENT
  Age: 30 Year
  Sex: Female

DRUGS (2)
  1. BUPROPION HYDROCHLORIDE [Suspect]
     Indication: DEPRESSION
     Route: 048
     Dates: start: 20121220, end: 20130104
  2. CABERGOLINE (CABERGOLINE) (UNKNOWN) (CABERGOLINE) [Concomitant]

REACTIONS (1)
  - Vaginal haemorrhage [None]
